FAERS Safety Report 7575648-6 (Version None)
Quarter: 2011Q2

REPORT INFORMATION
  Report Type: 
  Country: None (occurrence: None)
  Receive Date: 20110628
  Receipt Date: 20110617
  Transmission Date: 20111010
  Serious: Yes (Other)
  Sender: FDA-Public Use
  Company Number: GR-AMGEN-GRCSP2011031223

PATIENT
  Age: 89 Year
  Sex: Female

DRUGS (6)
  1. LASIX [Concomitant]
  2. DALZAD [Concomitant]
     Dosage: 160 MG, UNK
  3. PROLIA [Suspect]
     Indication: OSTEOPOROSIS
     Dosage: UNK
     Dates: start: 20110401
  4. DIGOXIN [Concomitant]
  5. ALPHA D3 [Concomitant]
  6. SINTROM [Concomitant]

REACTIONS (3)
  - MOBILITY DECREASED [None]
  - MUSCULOSKELETAL PAIN [None]
  - BEDRIDDEN [None]
